FAERS Safety Report 6572804-0 (Version None)
Quarter: 2010Q1

REPORT INFORMATION
  Report Type: 
  Country: None (occurrence: None)
  Receive Date: 20100205
  Receipt Date: 20100126
  Transmission Date: 20100710
  Serious: Yes (Hospitalization)
  Sender: FDA-Public Use
  Company Number: PHHO2010FR01578

PATIENT
  Sex: Female
  Weight: 86 kg

DRUGS (12)
  1. CGS 20267 T30748+TAB [Suspect]
     Indication: BREAST CANCER
     Dosage: 2.5 MG, QD
     Route: 048
     Dates: start: 20041007, end: 20090930
  2. ZOMETA [Suspect]
     Indication: BREAST CANCER
     Dosage: 3.5 MG / 6 MONTH
     Route: 042
     Dates: start: 20041007, end: 20090930
  3. ATARAX [Concomitant]
     Indication: ANXIETY
  4. IXPRIM [Concomitant]
  5. ENDOLELON [Concomitant]
     Indication: LYMPHOEDEMA
  6. PROGARON [Concomitant]
  7. HYPERIUM [Concomitant]
     Indication: HYPERTENSION
  8. ZANIDIP [Concomitant]
     Indication: HYPERTENSION
  9. LASILIX [Concomitant]
     Indication: HYPERTENSION
  10. TENORMIN [Concomitant]
     Indication: HYPERTENSION
  11. COAPROVEL [Concomitant]
     Indication: HYPERTENSION
  12. LIPANTHYL [Concomitant]
     Indication: HYPERLIPIDAEMIA

REACTIONS (2)
  - JAW OPERATION [None]
  - OSTEONECROSIS [None]
